APPROVED DRUG PRODUCT: LEVOCETIRIZINE HYDROCHLORIDE
Active Ingredient: LEVOCETIRIZINE DIHYDROCHLORIDE
Strength: 2.5MG/5ML
Dosage Form/Route: SOLUTION;ORAL
Application: A210914 | Product #001 | TE Code: AA
Applicant: HETERO LABS LTD UNIT III
Approved: Apr 1, 2019 | RLD: No | RS: No | Type: RX